FAERS Safety Report 6240543-1 (Version None)
Quarter: 2009Q2

REPORT INFORMATION
  Report Type: 
  Country: None (occurrence: None)
  Receive Date: 20090623
  Receipt Date: 20080908
  Transmission Date: 20091009
  Serious: No
  Sender: FDA-Public Use
  Company Number: US-ASTRAZENECA-2008UW18527

PATIENT
  Age: 79 Year
  Sex: Female
  Weight: 33.1 kg

DRUGS (4)
  1. PULMICORT RESPULES [Suspect]
     Indication: LUNG DISORDER
     Dosage: 05. MG/ML EVERYDAY
     Route: 055
     Dates: start: 20050101
  2. PULMICORT RESPULES [Suspect]
     Indication: ASTHMA
     Dosage: 05. MG/ML EVERYDAY
     Route: 055
     Dates: start: 20050101
  3. PULMICORT RESPULES [Suspect]
     Indication: BRONCHIECTASIS
     Dosage: 05. MG/ML EVERYDAY
     Route: 055
     Dates: start: 20050101
  4. ALBUTEROL [Concomitant]
     Dosage: THREE TIMES A DAY

REACTIONS (5)
  - COUGH [None]
  - DYSPHONIA [None]
  - MEDICATION ERROR [None]
  - RHINORRHOEA [None]
  - THROAT IRRITATION [None]
